FAERS Safety Report 7549127 (Version 3)
Quarter: 2012Q4

REPORT INFORMATION
  Report Type: 
  Country: CA (occurrence: CA)
  Receive Date: 20100820
  Receipt Date: 20121001
  Transmission Date: 20130627
  Serious: Yes (Death, Other)
  Sender: FDA-Public Use
  Company Number: PHHY2010CA47560

PATIENT
  Sex: Female

DRUGS (2)
  1. SANDOSTATIN LAR [Suspect]
     Indication: SMALL INTESTINE CARCINOMA
     Dosage: 20 mg, every 4 weeks
     Route: 030
     Dates: start: 20100715
  2. SANDOSTATIN LAR [Suspect]
     Dosage: 30 mg, once in a month
     Route: 030
     Dates: end: 20120828

REACTIONS (10)
  - Death [Fatal]
  - Weight decreased [Not Recovered/Not Resolved]
  - Hypoglycaemia [Unknown]
  - Tremor [Unknown]
  - Asthenia [Unknown]
  - Flushing [Unknown]
  - Feeling hot [Unknown]
  - Chills [Unknown]
  - Sluggishness [Unknown]
  - Alopecia [Unknown]
